FAERS Safety Report 8349250-2 (Version None)
Quarter: 2012Q2

REPORT INFORMATION
  Report Type: 
  Country: None (occurrence: None)
  Receive Date: 20120510
  Receipt Date: 20120504
  Transmission Date: 20120825
  Serious: Yes (Other)
  Sender: FDA-Public Use
  Company Number: PHEH2012US003531

PATIENT
  Sex: Female
  Weight: 13.015 kg

DRUGS (7)
  1. AFINITOR [Suspect]
     Dosage: 5 MG QD
     Route: 048
  2. LAMOTRIGINE [Concomitant]
     Dosage: UNK
  3. KEPPRA [Concomitant]
  4. VITAMIN [Concomitant]
     Dosage: UNK
  5. AFINITOR [Suspect]
     Indication: ASTROCYTOMA, LOW GRADE
     Dosage: 2.5 MG, DAILY
     Route: 048
     Dates: start: 20120121
  6. MELATONIN [Concomitant]
     Indication: RESTLESSNESS
     Dosage: 3 MG, QHS
     Route: 048
  7. AFINITOR [Suspect]
     Dosage: 2.5 MG, DAILY
     Route: 048

REACTIONS (5)
  - NEPHROLITHIASIS [None]
  - COGNITIVE DISORDER [None]
  - CONVULSION [None]
  - EAR INFECTION [None]
  - ORAL PAIN [None]
